FAERS Safety Report 9281031 (Version 3)
Quarter: 2014Q4

REPORT INFORMATION
  Report Type: Spontaneous
  Country: US (occurrence: US)
  Receive Date: 20130509
  Receipt Date: 20141110
  Transmission Date: 20150529
  Serious: Yes (Other)
  Sender: FDA-Public Use
  Company Number: US-GLAXOSMITHKLINE-A1022970A

PATIENT
  Sex: Male

DRUGS (1)
  1. ADVAIR HFA [Suspect]
     Active Substance: FLUTICASONE PROPIONATE\SALMETEROL XINAFOATE
     Indication: CHRONIC OBSTRUCTIVE PULMONARY DISEASE
     Dosage: 250/50 MCG
     Route: 055
     Dates: start: 200609

REACTIONS (4)
  - Lung neoplasm malignant [Unknown]
  - Dyspnoea [Not Recovered/Not Resolved]
  - Pneumonectomy [Unknown]
  - Lung disorder [Unknown]

NARRATIVE: CASE EVENT DATE: 2007
